FAERS Safety Report 13804576 (Version 1)
Quarter: 2017Q3

REPORT INFORMATION
  Report Type: Spontaneous
  Country: DE (occurrence: DE)
  Receive Date: 20170728
  Receipt Date: 20170728
  Transmission Date: 20171127
  Serious: Yes (Congenital Anomaly, Other)
  Sender: FDA-Public Use
  Company Number: DE-TORRENT-00006726

PATIENT
  Age: 1 Day
  Sex: Male
  Weight: 1 kg

DRUGS (4)
  1. LEVOTHYROXINE. [Concomitant]
     Active Substance: LEVOTHYROXINE
  2. BETAMETHASONE. [Concomitant]
     Active Substance: BETAMETHASONE
  3. SERTRALINE [Suspect]
     Active Substance: SERTRALINE HYDROCHLORIDE
  4. FOLIC ACID. [Concomitant]
     Active Substance: FOLIC ACID

REACTIONS (10)
  - Coordination abnormal [Unknown]
  - Meningoencephalitis viral [Recovered/Resolved]
  - Plagiocephaly [Unknown]
  - Nephrocalcinosis [Unknown]
  - Skin indentation [Not Recovered/Not Resolved]
  - Premature baby [Unknown]
  - Haemangioma congenital [Not Recovered/Not Resolved]
  - Patent ductus arteriosus [Recovered/Resolved]
  - Foetal exposure during pregnancy [Unknown]
  - Microphthalmos [Not Recovered/Not Resolved]

NARRATIVE: CASE EVENT DATE: 20160703
